FAERS Safety Report 5279106-3 (Version None)
Quarter: 2007Q1

REPORT INFORMATION
  Report Type: 
  Country: None (occurrence: None)
  Receive Date: 20061208
  Receipt Date: 20050531
  Transmission Date: 20070707
  Serious: No
  Sender: FDA-Public Use
  Company Number: 2005UW08471

PATIENT

DRUGS (6)
  1. CRESTOR [Suspect]
  2. LIPITOR [Suspect]
  3. ZOCOR [Concomitant]
  4. PRAVACHOL [Concomitant]
  5. LESCOL [Concomitant]
  6. LOVASTATIN [Concomitant]

REACTIONS (2)
  - BLOOD CREATINE PHOSPHOKINASE INCREASED [None]
  - MYALGIA [None]
